FAERS Safety Report 6586003-X (Version None)
Quarter: 2010Q1

REPORT INFORMATION
  Report Type: 
  Country: None (occurrence: None)
  Receive Date: 20100216
  Receipt Date: 20100216
  Transmission Date: 20100710
  Serious: Yes (Life-Threatening, Hospitalization)
  Sender: FDA-Public Use
  Company Number: None

PATIENT
  Age: 74 Year
  Sex: Male
  Weight: 53 kg

DRUGS (1)
  1. MEGESTROL [Suspect]
     Dosage: 400 MG BID PO
     Route: 048
     Dates: start: 20091230, end: 20100112

REACTIONS (2)
  - ADRENAL INSUFFICIENCY [None]
  - HYPOTENSION [None]
